FAERS Safety Report 12270710 (Version 1)
Quarter: 2016Q2

REPORT INFORMATION
  Report Type: Spontaneous
  Country: CN (occurrence: CN)
  Receive Date: 20160415
  Receipt Date: 20160415
  Transmission Date: 20160815
  Serious: Yes (Hospitalization)
  Sender: FDA-Public Use
  Company Number: CN-ROCHE-1740691

PATIENT
  Age: 55 Year
  Sex: Female
  Weight: 60 kg

DRUGS (10)
  1. FUROSEMIDE. [Suspect]
     Active Substance: FUROSEMIDE
     Indication: POLYURIA
     Route: 042
     Dates: start: 20151110, end: 20151119
  2. CLOPIDOGREL [Concomitant]
     Active Substance: CLOPIDOGREL BISULFATE
     Indication: PRODUCT USED FOR UNKNOWN INDICATION
     Dosage: 75 MG/D
     Route: 065
     Dates: start: 20151110
  3. PHENOBARBITAL SODIUM. [Concomitant]
     Active Substance: PHENOBARBITAL SODIUM
     Indication: PRODUCT USED FOR UNKNOWN INDICATION
     Route: 030
     Dates: start: 20151110
  4. EDARAVONE [Concomitant]
     Active Substance: EDARAVONE
     Indication: PRODUCT USED FOR UNKNOWN INDICATION
     Route: 041
     Dates: start: 20151110
  5. SODIUM VALPROATE [Suspect]
     Active Substance: VALPROATE SODIUM
     Indication: EPILEPSY
     Route: 065
     Dates: start: 20151110, end: 20151113
  6. METOPROLOL. [Concomitant]
     Active Substance: METOPROLOL
     Indication: PRODUCT USED FOR UNKNOWN INDICATION
     Route: 065
     Dates: start: 20151110
  7. MECOBALAMINE [Concomitant]
     Indication: PRODUCT USED FOR UNKNOWN INDICATION
     Route: 042
     Dates: start: 20151112
  8. MANNITOL. [Suspect]
     Active Substance: MANNITOL
     Indication: INTRACRANIAL PRESSURE INCREASED
     Route: 041
     Dates: start: 20151110, end: 20151113
  9. ATORVASTATIN CALCIUM. [Concomitant]
     Active Substance: ATORVASTATIN CALCIUM
     Indication: PRODUCT USED FOR UNKNOWN INDICATION
     Dosage: 20MG/D
     Route: 065
     Dates: start: 20151110
  10. ROCEPHIN [Suspect]
     Active Substance: CEFTRIAXONE SODIUM
     Indication: LUNG INFECTION
     Route: 041
     Dates: start: 20151110, end: 20151114

REACTIONS (1)
  - Crystalluria [Recovered/Resolved]

NARRATIVE: CASE EVENT DATE: 20151113
